FAERS Safety Report 20814051 (Version 1)
Quarter: 2022Q2

REPORT INFORMATION
  Report Type: Spontaneous
  Country: NO (occurrence: NO)
  Receive Date: 20220511
  Receipt Date: 20220511
  Transmission Date: 20220721
  Serious: Yes (Hospitalization, Other)
  Sender: FDA-Public Use
  Company Number: None

PATIENT
  Age: 34 Year
  Sex: Male

DRUGS (13)
  1. SUMATRIPTAN SUCCINATE [Suspect]
     Active Substance: SUMATRIPTAN SUCCINATE
     Indication: Migraine
     Dosage: 1 TABLET WHEN AN ATTACK STARTS. 1 TABLET AFTER 2 HOURS IF REQUIRED. MAX. 3 TABLETS/24H. THE PATIENTS
     Route: 048
     Dates: start: 2014
  2. SURMONTIL [Suspect]
     Active Substance: TRIMIPRAMINE MALEATE
     Indication: Irritable bowel syndrome
     Dosage: 50 MG, QD (VESP.)
     Route: 048
     Dates: start: 202110
  3. BUPROPION HYDROCHLORIDE\NALTREXONE HYDROCHLORIDE [Suspect]
     Active Substance: BUPROPION HYDROCHLORIDE\NALTREXONE HYDROCHLORIDE
     Indication: Overweight
     Dosage: 2 DF, BID
     Route: 048
     Dates: start: 202202, end: 20220407
  4. DYMISTA [Concomitant]
     Active Substance: AZELASTINE HYDROCHLORIDE\FLUTICASONE PROPIONATE
     Indication: Product used for unknown indication
     Dosage: 1 SPRAY IN EACH NOSTRIL X 2 AS REQUIRED
     Route: 045
  5. ZOLPIDEM TARTRATE [Concomitant]
     Active Substance: ZOLPIDEM TARTRATE
     Indication: Sleep disorder
     Dosage: 1 TABLET VESP. AS REQUIRED
     Route: 048
  6. FEXOFENADINE [Concomitant]
     Active Substance: FEXOFENADINE HYDROCHLORIDE
     Indication: Hypersensitivity
     Dosage: 120 MG, QD (VESPER.)
     Route: 048
  7. ALBUTEROL [Concomitant]
     Active Substance: ALBUTEROL
     Indication: Asthma
     Dosage: 1 DF, QID (1 INHALATION UP TO 4 TIMES DAILY AS REQUIRED.)
     Route: 055
  8. ACETAMINOPHEN\CODEINE PHOSPHATE [Concomitant]
     Active Substance: ACETAMINOPHEN\CODEINE PHOSPHATE
     Indication: Pain
     Dosage: 1 DF, TID (1 TABLET UP TO X 3 DAILY AS REQUIRED.)
     Route: 048
  9. NEXIUM [Concomitant]
     Active Substance: ESOMEPRAZOLE MAGNESIUM
     Indication: Gastrooesophageal reflux disease
     Dosage: 80 MG, QD (VESPER)
     Route: 048
     Dates: start: 20220222
  10. INUXAIR [Concomitant]
     Indication: Asthma
     Dosage: 2 DF, BID (2 INHALATIONS X 2)
     Route: 055
  11. MAGNESIUM [Concomitant]
     Active Substance: MAGNESIUM
     Indication: Product used for unknown indication
     Dosage: 350 MG, QD (VESPER)
     Route: 048
  12. IMODIUM [Concomitant]
     Active Substance: LOPERAMIDE HYDROCHLORIDE
     Indication: Diarrhoea
     Dosage: 2 TABLETS THE FIRST TIME, THEN DOSAGE AS REQUIRED (1 TABLET WHEN STOOLS ARE LOOSE)
     Route: 048
  13. AMLODIPINE\VALSARTAN [Concomitant]
     Active Substance: AMLODIPINE\VALSARTAN
     Indication: Hypertension
     Dosage: 1 DF, QD (VESPER)
     Route: 048

REACTIONS (2)
  - Generalised tonic-clonic seizure [Recovering/Resolving]
  - Acute kidney injury [Recovering/Resolving]

NARRATIVE: CASE EVENT DATE: 20220405
